FAERS Safety Report 5293678-4 (Version None)
Quarter: 2007Q2

REPORT INFORMATION
  Report Type: 
  Country: None (occurrence: None)
  Receive Date: 20070411
  Receipt Date: 20070327
  Transmission Date: 20071010
  Serious: Yes (Other)
  Sender: FDA-Public Use
  Company Number: US-SHR-US-2006-038194

PATIENT
  Age: 47 Year
  Sex: Female

DRUGS (3)
  1. BETASERON [Suspect]
     Indication: MULTIPLE SCLEROSIS
     Dosage: 8 MIU, EVERY 2D
     Route: 058
     Dates: start: 20061001
  2. PREDNISONE TAB [Suspect]
  3. CYCLOSPORINE [Concomitant]

REACTIONS (5)
  - ARTHRALGIA [None]
  - FACE OEDEMA [None]
  - INJECTION SITE INDURATION [None]
  - SARCOIDOSIS [None]
  - WEIGHT INCREASED [None]
